FAERS Safety Report 5031189-1 (Version None)
Quarter: 2006Q2

REPORT INFORMATION
  Report Type: 
  Country: None (occurrence: None)
  Receive Date: 20060619
  Receipt Date: 20060619
  Transmission Date: 20061013
  Serious: Yes (Hospitalization)
  Sender: FDA-Public Use
  Company Number: None

PATIENT
  Sex: Male
  Weight: 90 kg

DRUGS (3)
  1. CYCLOSPORINE [Suspect]
     Dosage: 4845 MG
  2. CYTARABINE [Suspect]
     Dosage: 2905 MG
  3. DAUNORUBICIN HCL [Suspect]
     Dosage: 270 MG

REACTIONS (8)
  - DIARRHOEA [None]
  - DYSPNOEA [None]
  - FEBRILE NEUTROPENIA [None]
  - HYPOXIA [None]
  - MOUTH ULCERATION [None]
  - PANCYTOPENIA [None]
  - PNEUMONITIS [None]
  - PYREXIA [None]
